FAERS Safety Report 12936235 (Version 1)
Quarter: 2016Q4

REPORT INFORMATION
  Report Type: Spontaneous
  Country: US (occurrence: US)
  Receive Date: 20161112
  Receipt Date: 20161112
  Transmission Date: 20170207
  Serious: No
  Sender: FDA-Public Use
  Company Number: None

PATIENT
  Age: 80 Day
  Sex: Female
  Weight: 60.75 kg

DRUGS (1)
  1. SPIRONOLACTONE. [Suspect]
     Active Substance: SPIRONOLACTONE
     Indication: FLUID RETENTION
     Dosage: ?          QUANTITY:1 TABLET(S);?
     Route: 048

REACTIONS (5)
  - Product substitution issue [None]
  - Drug ineffective [None]
  - Swelling [None]
  - Nausea [None]
  - Feeling abnormal [None]
